FAERS Safety Report 13032299 (Version 1)
Quarter: 2016Q4

REPORT INFORMATION
  Report Type: Spontaneous
  Country: US (occurrence: US)
  Receive Date: 20161215
  Receipt Date: 20161215
  Transmission Date: 20170207
  Serious: Yes (Other)
  Sender: FDA-Public Use
  Company Number: US-ELI_LILLY_AND_COMPANY-US201612002343

PATIENT
  Sex: Female

DRUGS (6)
  1. HUMALOG [Suspect]
     Active Substance: INSULIN LISPRO
     Indication: TYPE 2 DIABETES MELLITUS
     Dosage: 20 U, EACH MORNING
     Route: 065
     Dates: start: 2013
  2. HUMALOG [Suspect]
     Active Substance: INSULIN LISPRO
     Dosage: 20 U, EACH MORNING
     Route: 065
  3. HUMALOG [Suspect]
     Active Substance: INSULIN LISPRO
     Dosage: 20 U, EACH MORNING
     Route: 065
  4. HUMALOG [Suspect]
     Active Substance: INSULIN LISPRO
     Dosage: 18 U, EACH EVENING
     Route: 065
  5. HUMALOG [Suspect]
     Active Substance: INSULIN LISPRO
     Dosage: 18 U, EACH EVENING
     Route: 065
  6. HUMALOG [Suspect]
     Active Substance: INSULIN LISPRO
     Dosage: 18 U, EACH EVENING
     Route: 065

REACTIONS (5)
  - Pain in extremity [Not Recovered/Not Resolved]
  - Weight increased [Not Recovered/Not Resolved]
  - Cataract [Unknown]
  - Deafness [Not Recovered/Not Resolved]
  - Visual impairment [Unknown]

NARRATIVE: CASE EVENT DATE: 2013
